FAERS Safety Report 11127358 (Version 1)
Quarter: 2015Q2

REPORT INFORMATION
  Report Type: Spontaneous
  Country: US (occurrence: None)
  Receive Date: 20150519
  Receipt Date: 20150519
  Transmission Date: 20150821
  Serious: Yes (Hospitalization)
  Sender: FDA-Public Use
  Company Number: US-H14001-15-00755

PATIENT
  Age: 85 Year
  Sex: Male

DRUGS (2)
  1. DONEPEZIL [Suspect]
     Active Substance: DONEPEZIL
     Indication: COGNITIVE DISORDER
  2. ASPIRIN (ACETYLSALICYLIC AICD) [Concomitant]

REACTIONS (4)
  - Gastrointestinal ulcer [None]
  - Shock haemorrhagic [None]
  - Gastrointestinal haemorrhage [None]
  - Gastrointestinal erosion [None]
